FAERS Safety Report 9950266 (Version 1)
Quarter: 2014Q1

REPORT INFORMATION
  Report Type: Spontaneous
  Country: US (occurrence: US)
  Receive Date: 20140304
  Receipt Date: 20140304
  Transmission Date: 20141002
  Serious: No
  Sender: FDA-Public Use
  Company Number: US-ABBVIE-13P-163-1068640-00

PATIENT
  Age: 48 Year
  Sex: Female
  Weight: 79.9 kg

DRUGS (4)
  1. HUMIRA [Suspect]
     Indication: RHEUMATOID ARTHRITIS
     Dates: start: 201210
  2. CALCIUM [Concomitant]
     Indication: ALOPECIA
  3. MAGNESIUM [Concomitant]
     Indication: ALOPECIA
  4. VITAMIN C [Concomitant]
     Indication: ALOPECIA

REACTIONS (2)
  - Alopecia [Not Recovered/Not Resolved]
  - Upper respiratory tract infection [Recovered/Resolved]
